FAERS Safety Report 4331315-3 (Version None)
Quarter: 2004Q1

REPORT INFORMATION
  Report Type: 
  Country: None (occurrence: None)
  Receive Date: 20040331
  Receipt Date: 20040310
  Transmission Date: 20041129
  Serious: Yes (Hospitalization)
  Sender: FDA-Public Use
  Company Number: EWC040338447

PATIENT
  Sex: Female

DRUGS (3)
  1. HUMALOG [Suspect]
     Indication: DIABETES MELLITUS
  2. HUMALOG [Suspect]
     Indication: DIABETES MELLITUS
  3. LANTUS [Concomitant]

REACTIONS (3)
  - HYPOGLYCAEMIA [None]
  - MEDICATION ERROR [None]
  - PHARMACEUTICAL PRODUCT COMPLAINT [None]
